FAERS Safety Report 8027323-1 (Version None)
Quarter: 2012Q1

REPORT INFORMATION
  Report Type: 
  Country: None (occurrence: None)
  Receive Date: 20120105
  Receipt Date: 20120105
  Transmission Date: 20120608
  Serious: No
  Sender: FDA-Public Use
  Company Number: None

PATIENT
  Sex: Male
  Weight: 121.6 kg

DRUGS (3)
  1. SIMVASTATIN [Suspect]
     Indication: DYSLIPIDAEMIA
     Dosage: 40MG QHS PO
     Route: 048
     Dates: end: 20111221
  2. ACETAMINOPHEN [Suspect]
     Indication: PAIN
     Dosage: 650MG QID PO
     Route: 048
     Dates: end: 20111221
  3. WARFARIN SODIUM [Concomitant]

REACTIONS (1)
  - LIVER FUNCTION TEST ABNORMAL [None]
